FAERS Safety Report 5312940-X (Version None)
Quarter: 2007Q2

REPORT INFORMATION
  Report Type: 
  Country: None (occurrence: None)
  Receive Date: 20070430
  Receipt Date: 20070419
  Transmission Date: 20071010
  Serious: Yes (Other)
  Sender: FDA-Public Use
  Company Number: NZ-PFIZER INC-2007032115

PATIENT
  Age: 21 Year
  Sex: Female

DRUGS (2)
  1. ZYVOX [Suspect]
     Indication: MYCOBACTERIUM FORTUITUM INFECTION
  2. MOXIFLOXACIN HCL [Concomitant]

REACTIONS (1)
  - PARAESTHESIA [None]
